FAERS Safety Report 24239380 (Version 1)
Quarter: 2024Q3

REPORT INFORMATION
  Report Type: Report from Study
  Country: US (occurrence: None)
  Receive Date: 20240822
  Receipt Date: 20240822
  Transmission Date: 20241017
  Serious: Yes (Other)
  Sender: ASTRAZENECA
  Company Number: 2024A186081

PATIENT
  Age: 69 Year
  Sex: Female

DRUGS (3)
  1. LYNPARZA [Suspect]
     Active Substance: OLAPARIB
     Route: 048
     Dates: start: 20231010, end: 20231101
  2. LYNPARZA [Suspect]
     Active Substance: OLAPARIB
     Route: 048
     Dates: start: 20230602
  3. THYROTROPIN [Suspect]
     Active Substance: THYROTROPIN
     Dates: start: 20230603

REACTIONS (20)
  - Invasive ductal breast carcinoma [Unknown]
  - BRCA1 gene mutation [Unknown]
  - Hypokalaemia [Recovered/Resolved]
  - Hypothyroidism [Unknown]
  - Fatigue [Unknown]
  - Muscle spasms [Unknown]
  - Anaemia [Unknown]
  - Vulvovaginal dryness [Unknown]
  - Osteopenia [Unknown]
  - Obesity [Unknown]
  - Essential hypertension [Unknown]
  - Depression [Unknown]
  - Hyperlipidaemia [Unknown]
  - Arthralgia [Unknown]
  - Asthma [Unknown]
  - Menopause [Unknown]
  - Hypercholesterolaemia [Unknown]
  - Rhinitis allergic [Unknown]
  - Headache [Unknown]
  - Bronchitis [Unknown]

NARRATIVE: CASE EVENT DATE: 20220307
